FAERS Safety Report 13763524 (Version 2)
Quarter: 2017Q3

REPORT INFORMATION
  Report Type: Spontaneous
  Country: DZ (occurrence: DZ)
  Receive Date: 20170718
  Receipt Date: 20170804
  Transmission Date: 20171127
  Serious: Yes (Death, Hospitalization)
  Sender: FDA-Public Use
  Company Number: DZ-ACTELION-A-CH2017-156900

PATIENT
  Age: 4 Year
  Sex: Male
  Weight: 11 kg

DRUGS (12)
  1. ZECLAR [Concomitant]
     Active Substance: CLARITHROMYCIN
     Indication: RESPIRATORY FAILURE
     Dosage: 25 MG, BID
     Route: 048
     Dates: start: 2014, end: 20170715
  2. BACTRIM [Concomitant]
     Active Substance: SULFAMETHOXAZOLE\TRIMETHOPRIM
     Indication: RESPIRATORY FAILURE
     Dosage: UNK, BID
     Route: 048
     Dates: start: 2014, end: 20170715
  3. VANCOMYCIN [Concomitant]
     Active Substance: VANCOMYCIN
     Dosage: 300 UNK, UNK
  4. AUGMENTIN [Concomitant]
     Active Substance: AMOXICILLIN\CLAVULANATE POTASSIUM
     Indication: RESPIRATORY FAILURE
     Dosage: UNK, BID
     Route: 048
     Dates: start: 2014, end: 20170715
  5. ALBUMIN [Concomitant]
     Active Substance: ALBUMIN HUMAN
  6. CLAFORAN [Suspect]
     Active Substance: CEFOTAXIME SODIUM
     Indication: RESPIRATORY FAILURE
     Dosage: 370 MG, TID
     Route: 030
     Dates: start: 20170707, end: 20170715
  7. VITAMIN K [Concomitant]
     Active Substance: PHYTONADIONE
  8. ZAVESCA [Suspect]
     Active Substance: MIGLUSTAT
     Indication: NIEMANN-PICK DISEASE
     Dosage: 100 MG, OD
     Route: 048
     Dates: start: 20170713, end: 20170713
  9. DEXASONE [Suspect]
     Active Substance: DEXAMETHASONE
     Indication: RESPIRATORY FAILURE
     Dosage: 0.5 MG, QD
     Route: 030
     Dates: start: 20170707, end: 20170715
  10. VENTOLINE [Concomitant]
     Active Substance: ALBUTEROL
     Indication: RESPIRATORY FAILURE
     Dosage: 100 MCG, 3-4 PULV/DAY
     Route: 055
     Dates: start: 2014, end: 20170715
  11. OXYGEN. [Concomitant]
     Active Substance: OXYGEN
  12. LASIX [Suspect]
     Active Substance: FUROSEMIDE
     Indication: RESPIRATORY FAILURE
     Dosage: 10 MG, QD
     Route: 030
     Dates: start: 20170707, end: 20170715

REACTIONS (6)
  - Pulmonary function test abnormal [Fatal]
  - Loss of consciousness [Fatal]
  - Asthenia [Fatal]
  - Respiratory failure [Fatal]
  - General physical health deterioration [Fatal]
  - Respiratory distress [Fatal]

NARRATIVE: CASE EVENT DATE: 20170713
